FAERS Safety Report 19416386 (Version 1)
Quarter: 2021Q2

REPORT INFORMATION
  Report Type: Spontaneous
  Country: US (occurrence: US)
  Receive Date: 20210614
  Receipt Date: 20210614
  Transmission Date: 20210717
  Serious: Yes (Other)
  Sender: FDA-Public Use
  Company Number: None

PATIENT
  Age: 76 Year
  Sex: Female

DRUGS (1)
  1. REVATIO [Suspect]
     Active Substance: SILDENAFIL CITRATE
     Indication: CREST SYNDROME
     Dosage: ?          OTHER DOSE:1 TAB;?
     Route: 048
     Dates: start: 20190416

REACTIONS (1)
  - Bone neoplasm [None]

NARRATIVE: CASE EVENT DATE: 20210511
